FAERS Safety Report 24766529 (Version 2)
Quarter: 2025Q3

REPORT INFORMATION
  Report Type: Report from Study
  Country: US (occurrence: US)
  Receive Date: 20241223
  Receipt Date: 20250802
  Transmission Date: 20251021
  Serious: Yes (Other)
  Sender: ALEXION PHARMACEUTICALS
  Company Number: 2024A190678

PATIENT
  Sex: Male

DRUGS (17)
  1. FASENRA [Suspect]
     Active Substance: BENRALIZUMAB
     Indication: Asthma
  2. SYMBICORT [Concomitant]
     Active Substance: BUDESONIDE\FORMOTEROL FUMARATE DIHYDRATE
  3. ESOMEPRAZOLE [Concomitant]
     Active Substance: ESOMEPRAZOLE
  4. ROSUVASTATIN [Concomitant]
     Active Substance: ROSUVASTATIN
  5. ALBUTEROL [Concomitant]
     Active Substance: ALBUTEROL
  6. GABAPENTIN [Concomitant]
     Active Substance: GABAPENTIN
  7. HYDROCODONE [Concomitant]
     Active Substance: HYDROCODONE
  8. CHLORTHALIDONE [Concomitant]
     Active Substance: CHLORTHALIDONE
  9. LORATADINE [Concomitant]
     Active Substance: LORATADINE
  10. LOSARTAN [Concomitant]
     Active Substance: LOSARTAN
  11. METOPROLOL [Concomitant]
     Active Substance: METOPROLOL
  12. MONTELUKAST [Concomitant]
     Active Substance: MONTELUKAST
  13. OZEMPIC [Concomitant]
     Active Substance: SEMAGLUTIDE
  14. RESTASIS [Concomitant]
     Active Substance: CYCLOSPORINE
  15. SPIRONOLACTONE [Concomitant]
     Active Substance: SPIRONOLACTONE
  16. TIZANIDINE [Concomitant]
     Active Substance: TIZANIDINE
  17. XYWAV [Concomitant]
     Active Substance: CALCIUM OXYBATE\MAGNESIUM OXYBATE\POTASSIUM OXYBATE\SODIUM OXYBATE

REACTIONS (5)
  - Peripheral venous disease [Unknown]
  - Dry eye [Unknown]
  - Peripheral swelling [Unknown]
  - Depression [Unknown]
  - Dyspnoea [Unknown]
